FAERS Safety Report 10855628 (Version 1)
Quarter: 2015Q1

REPORT INFORMATION
  Report Type: Spontaneous
  Country: IN (occurrence: IN)
  Receive Date: 20150223
  Receipt Date: 20150223
  Transmission Date: 20150721
  Serious: Yes (Other)
  Sender: FDA-Public Use
  Company Number: PHHY2015IN018199

PATIENT
  Age: 45 Year
  Sex: Male

DRUGS (1)
  1. PREDNISOLONE. [Suspect]
     Active Substance: PREDNISOLONE
     Indication: HASHIMOTO^S ENCEPHALOPATHY
     Dosage: 60 MG, QD
     Route: 048

REACTIONS (1)
  - Haematemesis [Unknown]
